FAERS Safety Report 20867868 (Version 1)
Quarter: 2022Q2

REPORT INFORMATION
  Report Type: Other
  Country: US (occurrence: US)
  Receive Date: 20220524
  Receipt Date: 20220524
  Transmission Date: 20220721
  Serious: Yes (Other)
  Sender: FDA-Public Use
  Company Number: US-GLAUKOS-34936

PATIENT

DRUGS (6)
  1. PHOTREXA VISCOUS [Suspect]
     Active Substance: RIBOFLAVIN 5^-PHOSPHATE SODIUM
     Indication: Keratoconus
     Dosage: ALTERNATELY APPLIED TOPICALLY TO THE CORNEAL SURFACE
     Route: 047
  2. PHOTREXA VISCOUS [Suspect]
     Active Substance: RIBOFLAVIN 5^-PHOSPHATE SODIUM
     Indication: Corneal disorder
  3. PHOTREXA [Suspect]
     Active Substance: RIBOFLAVIN 5^-PHOSPHATE SODIUM
     Indication: Keratoconus
     Dosage: ALTERNATELY APPLIED TOPICALLY TO THE CORNEAL SURFACE
     Route: 047
  4. PHOTREXA [Suspect]
     Active Substance: RIBOFLAVIN 5^-PHOSPHATE SODIUM
     Indication: Corneal disorder
  5. DEVICE [Suspect]
     Active Substance: DEVICE
     Indication: Keratoconus
     Dosage: 3.0 MW/CM2
     Route: 047
  6. DEVICE [Suspect]
     Active Substance: DEVICE
     Indication: Corneal disorder

REACTIONS (4)
  - Visual impairment [Not Recovered/Not Resolved]
  - Visual acuity reduced [Not Recovered/Not Resolved]
  - Corneal scar [Not Recovered/Not Resolved]
  - Inappropriate schedule of product administration [Unknown]
